FAERS Safety Report 8035721-5 (Version None)
Quarter: 2011Q4

REPORT INFORMATION
  Report Type: 
  Country: None (occurrence: None)
  Receive Date: 20111227
  Receipt Date: 20111214
  Transmission Date: 20120403
  Serious: Yes (Other)
  Sender: FDA-Public Use
  Company Number: 2011SP052651

PATIENT
  Age: 76 Year
  Sex: Male

DRUGS (2)
  1. PEG-INTRON [Suspect]
     Indication: PRODUCT USED FOR UNKNOWN INDICATION
     Dosage: SC
     Route: 058
  2. REBETOL [Suspect]
     Indication: PRODUCT USED FOR UNKNOWN INDICATION
     Dosage: PO
     Route: 048

REACTIONS (1)
  - HEPATIC NEOPLASM MALIGNANT [None]
